FAERS Safety Report 21235990 (Version 1)
Quarter: 2022Q3

REPORT INFORMATION
  Report Type: Other
  Country: US (occurrence: None)
  Receive Date: 20220822
  Receipt Date: 20220822
  Transmission Date: 20221027
  Serious: Yes (Death)
  Sender: FDA-Public Use
  Company Number: US-ROCHE-2651982

PATIENT
  Age: 49 Year
  Sex: Male

DRUGS (15)
  1. RITUXAN [Suspect]
     Active Substance: RITUXIMAB
     Indication: Pulmonary hypertension
     Dosage: ONGOING: YES
     Route: 042
     Dates: start: 202002
  2. RITUXAN [Suspect]
     Active Substance: RITUXIMAB
     Indication: Psoriasis
  3. RITUXAN [Suspect]
     Active Substance: RITUXIMAB
     Indication: Interstitial lung disease
  4. RITUXAN [Suspect]
     Active Substance: RITUXIMAB
     Indication: Pulmonary hypertension
  5. ASCORBIC ACID [Concomitant]
     Active Substance: ASCORBIC ACID
  6. BETAMETHASONE [Concomitant]
     Active Substance: BETAMETHASONE
  7. CYCLOBENZAPRINE [Concomitant]
     Active Substance: CYCLOBENZAPRINE
  8. FOLIC ACID [Concomitant]
     Active Substance: FOLIC ACID
  9. HYDROXYCHLOROQUINE [Concomitant]
     Active Substance: HYDROXYCHLOROQUINE
  10. INDOMETHACIN [Concomitant]
     Active Substance: INDOMETHACIN
  11. LORAZEPAM [Concomitant]
     Active Substance: LORAZEPAM
  12. MEPOLIZUMAB [Concomitant]
     Active Substance: MEPOLIZUMAB
  13. OXYCODONE [Concomitant]
     Active Substance: OXYCODONE
  14. TIMOLOL [Concomitant]
     Active Substance: TIMOLOL
  15. AMITRIPTYLINE [Concomitant]
     Active Substance: AMITRIPTYLINE

REACTIONS (2)
  - Off label use [Unknown]
  - Death [Fatal]

NARRATIVE: CASE EVENT DATE: 20220401
